FAERS Safety Report 6393084-5 (Version None)
Quarter: 2009Q4

REPORT INFORMATION
  Report Type: 
  Country: None (occurrence: None)
  Receive Date: 20091008
  Receipt Date: 20091005
  Transmission Date: 20100525
  Serious: Yes (Other)
  Sender: FDA-Public Use
  Company Number: CH-ROCHE-659078

PATIENT
  Age: 37 Year
  Sex: Female

DRUGS (7)
  1. CAPECITABINE [Suspect]
     Indication: METASTASES TO EYE
     Route: 065
  2. CAPECITABINE [Suspect]
     Dosage: DOSE REDUCTION
     Route: 065
  3. TRASTUZUMAB [Suspect]
     Route: 065
  4. PACLITAXEL [Suspect]
     Route: 065
  5. PARAPLATIN [Suspect]
     Route: 065
  6. LAPATINIB [Suspect]
     Indication: METASTASES TO EYE
     Route: 065
  7. LAPATINIB [Suspect]
     Dosage: DOSE REDUCED
     Route: 065

REACTIONS (4)
  - BLINDNESS [None]
  - GASTROINTESTINAL TOXICITY [None]
  - METASTASES TO EYE [None]
  - PAIN [None]
